FAERS Safety Report 10167403 (Version 2)
Quarter: 2014Q2

REPORT INFORMATION
  Report Type: Spontaneous
  Country: US (occurrence: None)
  Receive Date: 20140508
  Receipt Date: 20140519
  Transmission Date: 20141212
  Serious: Yes (Other)
  Sender: FDA-Public Use
  Company Number: AUR-APL-2014-05415

PATIENT
  Age: 52 Year
  Sex: Female

DRUGS (7)
  1. TERBINAFINE [Suspect]
     Indication: TINEA INFECTION
     Route: 048
  2. OXISTAT [Suspect]
     Indication: TINEA INFECTION
     Route: 061
     Dates: start: 20140110, end: 201402
  3. LOCOID [Suspect]
     Indication: TINEA INFECTION
  4. KENALOG [Suspect]
     Indication: TINEA INFECTION
  5. ZYRTEC [Suspect]
     Indication: TINEA INFECTION
  6. KETOCONAZOLE [Suspect]
     Indication: TINEA INFECTION
     Dates: start: 20140301, end: 20140324
  7. CLARITIN [Suspect]
     Indication: TINEA INFECTION

REACTIONS (11)
  - Application site infection [None]
  - Drug ineffective [None]
  - Burning sensation [None]
  - Skin burning sensation [None]
  - Dermatitis [None]
  - Palpitations [None]
  - Erythema [None]
  - Drug hypersensitivity [None]
  - Blister [None]
  - Immune system disorder [None]
  - Application site pain [None]
